FAERS Safety Report 14988233 (Version 2)
Quarter: 2018Q2

REPORT INFORMATION
  Report Type: Spontaneous
  Country: US (occurrence: US)
  Receive Date: 20180608
  Receipt Date: 20180615
  Transmission Date: 20180711
  Serious: Yes (Other)
  Sender: FDA-Public Use
  Company Number: US-PFIZER INC-2018234216

PATIENT
  Age: 70 Year
  Sex: Female
  Weight: 126.98 kg

DRUGS (2)
  1. IBRANCE [Suspect]
     Active Substance: PALBOCICLIB
     Dosage: 125 MG, CYCLIC (EVERY DAY FOR 3 WEEKS AND OFF 1 WEEK)
     Dates: start: 201609
  2. IBRANCE [Suspect]
     Active Substance: PALBOCICLIB
     Indication: BREAST CANCER STAGE IV
     Dosage: 75 MG, UNK

REACTIONS (8)
  - Neoplasm progression [Unknown]
  - Burn oral cavity [Unknown]
  - Polyarthritis [Unknown]
  - Bone disorder [Unknown]
  - Fatigue [Unknown]
  - Alopecia [Unknown]
  - Tumour marker increased [Unknown]
  - Rotator cuff syndrome [Not Recovered/Not Resolved]

NARRATIVE: CASE EVENT DATE: 2017
